FAERS Safety Report 6106793-X (Version None)
Quarter: 2009Q1

REPORT INFORMATION
  Report Type: 
  Country: None (occurrence: None)
  Receive Date: 20090304
  Receipt Date: 20090216
  Transmission Date: 20090719
  Serious: Yes (Hospitalization)
  Sender: FDA-Public Use
  Company Number: 000443

PATIENT
  Sex: Female

DRUGS (14)
  1. ROTIGOTINE          (ROTIGOTINE) [Suspect]
     Indication: PARKINSON'S DISEASE
     Dosage: 4.5 MG TRANSDERMAL, 9 MG, TRANSDERMAL, 13.5 MG TRANSDERMAL
     Route: 062
     Dates: start: 20080918, end: 20080924
  2. ROTIGOTINE          (ROTIGOTINE) [Suspect]
     Indication: PARKINSON'S DISEASE
     Dosage: 4.5 MG TRANSDERMAL, 9 MG, TRANSDERMAL, 13.5 MG TRANSDERMAL
     Route: 062
     Dates: start: 20080925, end: 20080929
  3. ROTIGOTINE          (ROTIGOTINE) [Suspect]
     Indication: PARKINSON'S DISEASE
     Dosage: 4.5 MG TRANSDERMAL, 9 MG, TRANSDERMAL, 13.5 MG TRANSDERMAL
     Route: 062
     Dates: start: 20080930
  4. OMEPRAZOLE [Concomitant]
  5. MAGNESIUM OXIDE [Concomitant]
  6. ANTIFUNGALS [Concomitant]
  7. ETIZOLAM [Concomitant]
  8. NABUMETONE [Concomitant]
  9. KETOPROFEN [Concomitant]
  10. AMANTADINE HCL [Concomitant]
  11. CLONAZEPAM [Concomitant]
  12. DICLOFENAC SODIUM [Concomitant]
  13. HYALURONATE SODIUM [Concomitant]
  14. FRADIOMYCIN-GRAMICIDIN S [Concomitant]

REACTIONS (1)
  - EPISTAXIS [None]
